FAERS Safety Report 7270872-4 (Version None)
Quarter: 2011Q1

REPORT INFORMATION
  Report Type: 
  Country: None (occurrence: None)
  Receive Date: 20110125
  Receipt Date: 20110125
  Transmission Date: 20110831
  Serious: Yes (Other)
  Sender: FDA-Public Use
  Company Number: None

PATIENT
  Sex: Male

DRUGS (1)
  1. GEODON [Suspect]
     Indication: BIPOLAR DISORDER
     Dosage: 1 AMHS PO
     Route: 048
     Dates: start: 20101218, end: 20101219

REACTIONS (2)
  - DYSPNOEA [None]
  - SWOLLEN TONGUE [None]
